FAERS Safety Report 21711777 (Version 1)
Quarter: 2022Q4

REPORT INFORMATION
  Report Type: Spontaneous
  Country: NL (occurrence: NL)
  Receive Date: 20221212
  Receipt Date: 20221212
  Transmission Date: 20230113
  Serious: Yes (Life-Threatening, Hospitalization)
  Sender: FDA-Public Use
  Company Number: None

PATIENT
  Sex: Female
  Weight: 111 kg

DRUGS (8)
  1. PEMBROLIZUMAB [Suspect]
     Active Substance: PEMBROLIZUMAB
     Indication: Lung cancer metastatic
     Dosage: 200MG INTRA VENOUS EVERY 3 WEEKS
     Dates: start: 20210826, end: 20221027
  2. RIVAROXABAN [Concomitant]
     Active Substance: RIVAROXABAN
     Dosage: TABLET, 20 MG (MILLIGRAM)
  3. ONDANSETRON [Concomitant]
     Active Substance: ONDANSETRON
     Dosage: INJECTION FLUID, 2 MG/ML (MILLIGRAM PER MILLILITER)
  4. PEMETREXED [Concomitant]
     Active Substance: PEMETREXED
     Dosage: SOLUTION FOR INFUSION, 775MG
  5. DIGOXIN [Concomitant]
     Active Substance: DIGOXIN
     Dosage: TABLET, 0.125 MG (MILLIGRAM)
  6. AMOXICILLIN [Concomitant]
     Active Substance: AMOXICILLIN
     Dosage: TABLET, 750 MG (MILLIGRAM)
  7. HYDROXOCOBALAMINE HYDROCHLORIDE [Concomitant]
     Dosage: INJECTION FLUID, 500 UG/ML (MICROGRAM PER MILLILITER)
  8. DEXAMETHASONE [Concomitant]
     Active Substance: DEXAMETHASONE
     Dosage: INJECTION FLUID, 4 MG/ML (MILLIGRAM PER MILLILITER)

REACTIONS (2)
  - Acute kidney injury [Not Recovered/Not Resolved]
  - Ureteritis [Not Recovered/Not Resolved]
